FAERS Safety Report 5058864-7 (Version None)
Quarter: 2006Q3

REPORT INFORMATION
  Report Type: 
  Country: None (occurrence: None)
  Receive Date: 20060721
  Receipt Date: 20050804
  Transmission Date: 20061208
  Serious: No
  Sender: FDA-Public Use
  Company Number: US-AMGEN-KDL145587

PATIENT
  Sex: Male

DRUGS (1)
  1. PROCRIT [Suspect]
     Indication: PRE-EXISTING DISEASE
     Dates: start: 20040101

REACTIONS (4)
  - APNOEA [None]
  - DYSPNOEA [None]
  - MIDDLE INSOMNIA [None]
  - SOMNOLENCE [None]
